FAERS Safety Report 10385782 (Version 2)
Quarter: 2014Q3

REPORT INFORMATION
  Report Type: Spontaneous
  Country: US (occurrence: US)
  Receive Date: 20140814
  Receipt Date: 20140814
  Transmission Date: 20150326
  Serious: Yes (Hospitalization)
  Sender: FDA-Public Use
  Company Number: US-PFIZER INC-2014132813

PATIENT
  Age: 30 Year
  Sex: Male
  Weight: 77 kg

DRUGS (1)
  1. PRALIDOXIME CHLORIDE. [Suspect]
     Active Substance: PRALIDOXIME CHLORIDE
     Dosage: 600 MG, UNK
     Dates: start: 20130211, end: 20130211

REACTIONS (11)
  - Peripheral swelling [Unknown]
  - Heart rate increased [Unknown]
  - Neuralgia [Unknown]
  - Hypoaesthesia [Unknown]
  - Accidental exposure to product [Unknown]
  - Paraesthesia [Unknown]
  - Trigger finger [Unknown]
  - Pain in extremity [Unknown]
  - Dysaesthesia [Unknown]
  - Neuropathy peripheral [Unknown]
  - Wound [Recovering/Resolving]

NARRATIVE: CASE EVENT DATE: 20130211
